FAERS Safety Report 5889101-9 (Version None)
Quarter: 2008Q3

REPORT INFORMATION
  Report Type: 
  Country: None (occurrence: None)
  Receive Date: 20080915
  Receipt Date: 20080901
  Transmission Date: 20090109
  Serious: Yes (Hospitalization)
  Sender: FDA-Public Use
  Company Number: THYM-1000764

PATIENT
  Age: 53 Year
  Sex: Female
  Weight: 52.3 kg

DRUGS (13)
  1. THYMOGLOBULIN [Suspect]
     Indication: MYELODYSPLASTIC SYNDROME
     Dosage: 3.75 MG/KG, QD, INTRAVENOUS
     Route: 042
     Dates: start: 20080827, end: 20080831
  2. ACETAMINOPHEN [Concomitant]
  3. DOMPERIDONE (DOMPERIDONE) [Concomitant]
  4. HYDROCORTISONE [Concomitant]
  5. PREDNISOLONE ACETATE [Concomitant]
  6. OMEPRAZOLE [Concomitant]
  7. CHLORPHENIRAMINE MALEATE [Concomitant]
  8. ACYCLOVIR [Concomitant]
  9. ITRACONAZOLE [Concomitant]
  10. GENTAMICIN [Concomitant]
  11. PIPERACILLIN SODIUM AND TAZOBACTAM SODIUM [Concomitant]
  12. CALCIUM GLUCONATE [Concomitant]
  13. KALIUM CHLORID (POTASSIUM CHLORIDE) [Concomitant]

REACTIONS (5)
  - HAEMOGLOBIN DECREASED [None]
  - HYPOCALCAEMIA [None]
  - HYPOKALAEMIA [None]
  - PYREXIA [None]
  - SINUS BRADYCARDIA [None]
